FAERS Safety Report 8087807-7 (Version None)
Quarter: 2012Q1

REPORT INFORMATION
  Report Type: 
  Country: None (occurrence: None)
  Receive Date: 20120128
  Receipt Date: 20110606
  Transmission Date: 20120608
  Serious: No
  Sender: FDA-Public Use
  Company Number: US-ABBOTT-11P-163-0730576-00

PATIENT
  Age: 39 Year
  Sex: Male

DRUGS (11)
  1. METOPROLOL TARTRATE [Concomitant]
     Indication: BLOOD PRESSURE
     Route: 048
  2. XANAX [Concomitant]
     Indication: SEDATIVE THERAPY
     Route: 048
  3. HYDROCODONE BITARTRATE [Concomitant]
     Indication: ARTHRALGIA
     Dosage: 10/250
     Route: 048
  4. LISINOPRIL [Concomitant]
     Indication: BLOOD PRESSURE
     Route: 048
  5. LOVASTATIN [Concomitant]
     Indication: BLOOD CHOLESTEROL
     Dosage: AT NIGHT
     Route: 048
  6. SEROQUEL [Concomitant]
     Indication: INSOMNIA
     Dosage: AT NIGHT
     Route: 048
  7. NEURONTIN [Concomitant]
     Indication: ARTHRALGIA
     Route: 048
  8. PREVACID [Concomitant]
     Indication: GASTROOESOPHAGEAL REFLUX DISEASE
     Route: 048
  9. HUMIRA [Suspect]
     Indication: PSORIASIS
     Dates: start: 20080601, end: 20081201
  10. PRISTIQ [Concomitant]
     Indication: PAIN
     Route: 048
  11. FLEXERIL [Concomitant]
     Indication: ARTHRALGIA
     Route: 048

REACTIONS (1)
  - PSORIASIS [None]
